FAERS Safety Report 22367748 (Version 1)
Quarter: 2023Q2

REPORT INFORMATION
  Report Type: Other
  Country: None (occurrence: FR)
  Receive Date: 20230525
  Receipt Date: 20230525
  Transmission Date: 20230722
  Serious: Yes (Hospitalization)
  Sender: FDA-Public Use
  Company Number: FR-B.Braun Medical Inc.-2142005

PATIENT
  Age: 15 Year
  Sex: Female

DRUGS (1)
  1. ACETAMINOPHEN [Suspect]
     Active Substance: ACETAMINOPHEN
     Route: 048

REACTIONS (3)
  - Procalcitonin increased [Unknown]
  - Toxicity to various agents [Unknown]
  - Intentional overdose [Unknown]
